FAERS Safety Report 8724497 (Version 3)
Quarter: 2014Q3

REPORT INFORMATION
  Report Type: Spontaneous
  Country: US (occurrence: US)
  Receive Date: 20120815
  Receipt Date: 20140915
  Transmission Date: 20150326
  Serious: No
  Sender: FDA-Public Use
  Company Number: US-BRISTOL-MYERS SQUIBB COMPANY-16763286

PATIENT
  Age: 53 Year
  Sex: Female
  Weight: 105.67 kg

DRUGS (2)
  1. ONGLYZA [Suspect]
     Active Substance: SAXAGLIPTIN HYDROCHLORIDE
     Indication: HYPERGLYCAEMIA
     Dosage: UNPRESCRIBED DOSAGE INCR. TO 10MG (5 MG MORNING5 MG EVENING)?LOT#1K6044B,OCT14
     Dates: start: 20111221, end: 20120710
  2. HUMALOG [Suspect]
     Active Substance: INSULIN LISPRO
     Dosage: UNPRESCRIBED
     Dates: start: 20120623

REACTIONS (3)
  - Overdose [Unknown]
  - Drug ineffective [Unknown]
  - Nasal dryness [Unknown]

NARRATIVE: CASE EVENT DATE: 201112
